FAERS Safety Report 10410048 (Version 15)
Quarter: 2015Q4

REPORT INFORMATION
  Report Type: Report from Study
  Country: CA (occurrence: CA)
  Receive Date: 20140826
  Receipt Date: 20151113
  Transmission Date: 20160304
  Serious: Yes (Other)
  Sender: FDA-Public Use
  Company Number: CA-ALEXION-A201400192

PATIENT
  Age: 51 Year
  Sex: Female
  Weight: 54.42 kg

DRUGS (43)
  1. VOLTAREN JOINT PAIN [Concomitant]
     Indication: ARTHRALGIA
     Dosage: 1 COAT, PRN
     Route: 061
     Dates: start: 20120208
  2. ADVIL [Concomitant]
     Active Substance: IBUPROFEN
     Indication: MIGRAINE
     Dosage: 200 MG, PRN
     Route: 048
     Dates: start: 20131129
  3. GELEE ROYALE [Concomitant]
     Indication: SUPPLEMENTATION THERAPY
     Dosage: 1 TSP, QD
     Route: 048
     Dates: start: 201209
  4. FLORADIX [Concomitant]
     Active Substance: IRON
     Indication: SUPPLEMENTATION THERAPY
     Dosage: 20 ML, QD
     Route: 048
     Dates: start: 201311
  5. SOLIRIS [Suspect]
     Active Substance: ECULIZUMAB
     Dosage: 900 MG, Q2W
     Route: 042
     Dates: start: 20120215
  6. TYLENOL EXTRA STRENGTH [Concomitant]
     Active Substance: ACETAMINOPHEN
     Indication: PAIN
  7. FLORADIQUE [Concomitant]
     Dosage: 30 ML, QD
     Route: 048
     Dates: start: 2000, end: 20120401
  8. GLYCERIN                           /00200601/ [Concomitant]
     Active Substance: GLYCERIN
     Indication: CONSTIPATION PROPHYLAXIS
     Dosage: UNK, PRN
     Route: 054
     Dates: start: 201305
  9. SOLIRIS [Suspect]
     Active Substance: ECULIZUMAB
     Indication: PAROXYSMAL NOCTURNAL HAEMOGLOBINURIA
     Dosage: 600 MG, QW
     Route: 042
     Dates: start: 20120118, end: 20120208
  10. SOLIRIS [Suspect]
     Active Substance: ECULIZUMAB
     Dosage: 900 MG, Q2W
     Route: 042
     Dates: start: 20120215
  11. TYLENOL EXTRA STRENGTH [Concomitant]
     Active Substance: ACETAMINOPHEN
     Indication: PYREXIA
     Dosage: 2 TABS, PRN
     Route: 048
     Dates: end: 20120203
  12. FLORADIQUE [Concomitant]
     Indication: SUPPLEMENTATION THERAPY
     Dosage: 30 ML, QD
     Route: 048
     Dates: start: 201311
  13. CURCUMA [Concomitant]
     Indication: SUPPLEMENTATION THERAPY
     Dosage: 425 MG, TID
     Route: 048
     Dates: start: 20111101, end: 20120401
  14. VITAMIN E [Concomitant]
     Active Substance: .ALPHA.-TOCOPHEROL
     Indication: SUPPLEMENTATION THERAPY
     Dosage: 400 IU, BID
     Route: 048
     Dates: start: 200001
  15. BENILYN [Concomitant]
     Indication: OROPHARYNGEAL PAIN
  16. GENACOL                            /00724201/ [Concomitant]
     Indication: ARTHRALGIA
     Dosage: 2 CAPSULES, PRN
     Route: 048
     Dates: start: 20120401
  17. CIPRO                              /00697201/ [Concomitant]
     Active Substance: CIPROFLOXACIN
     Indication: DIVERTICULITIS
     Dosage: 500 MG, TID
     Route: 048
     Dates: start: 20130411, end: 20130426
  18. SOLIRIS [Suspect]
     Active Substance: ECULIZUMAB
     Dosage: 900 MG, Q2W
     Route: 042
     Dates: start: 20120215
  19. ROBAXACET [Concomitant]
     Active Substance: ACETAMINOPHEN\METHOCARBAMOL
     Indication: NECK PAIN
     Dosage: 1-2 TABLETS, PRN
     Dates: start: 201202
  20. BENILYN [Concomitant]
     Indication: RHINORRHOEA
     Dosage: UNK, UNK, PRN, 1 TAB
     Route: 048
     Dates: start: 20120507
  21. PICO-SALAX [Concomitant]
     Active Substance: CITRIC ACID MONOHYDRATE\MAGNESIUM OXIDE\SODIUM PICOSULFATE
     Indication: COLONOSCOPY
     Dosage: 1 TREATMENT
     Route: 065
     Dates: start: 20140814, end: 20140814
  22. SOLIRIS [Suspect]
     Active Substance: ECULIZUMAB
     Dosage: 900 MG, Q2W
     Route: 042
     Dates: start: 20120215
  23. VITAMIN D [Concomitant]
     Active Substance: CHOLECALCIFEROL
     Indication: SUPPLEMENTATION THERAPY
     Dosage: 2000 IU, QD
     Route: 048
     Dates: start: 201001
  24. COMPLEX B 100 [Concomitant]
     Indication: SUPPLEMENTATION THERAPY
     Dosage: 1 TABLET, TID
     Route: 048
     Dates: start: 20110830
  25. RESTORALAX [Concomitant]
     Active Substance: POLYETHYLENE GLYCOL 3350
     Indication: LAXATIVE SUPPORTIVE CARE
     Dosage: UNK, 2 TEASPOON
     Route: 048
     Dates: start: 20130419
  26. WOMEN HORMONAL BALANCE [Concomitant]
     Indication: SUPPLEMENTATION THERAPY
     Dosage: 1 TABLET, BID
     Route: 048
     Dates: start: 201303
  27. PROBIOTIC                          /06395501/ [Concomitant]
     Active Substance: BIFIDOBACTERIUM ANIMALIS SUBSP. LACTIS
     Indication: ABDOMINAL PAIN
     Dosage: UNK
     Route: 048
     Dates: start: 20130706, end: 20130707
  28. GRAVOL [Concomitant]
     Active Substance: DIMENHYDRINATE
     Indication: NAUSEA
     Dosage: 50 MG, PRN
     Route: 048
     Dates: start: 20131129
  29. MOTRIN MIGRAINE [Concomitant]
     Indication: MIGRAINE
     Dosage: 2 TABS, PRN
     Route: 048
     Dates: end: 20120203
  30. GLUCOSAMINE CHONDROITIN            /01625901/ [Concomitant]
     Indication: SUPPLEMENTATION THERAPY
     Dosage: 500MG/400MG, TID
     Route: 048
     Dates: end: 20120401
  31. ADVIL [Concomitant]
     Active Substance: IBUPROFEN
     Indication: INCISION SITE PAIN
     Dosage: 200 MG, PRN, 1 CO
     Route: 048
     Dates: start: 20120710
  32. PHYTOPLANCTON MARIN [Concomitant]
     Indication: SUPPLEMENTATION THERAPY
     Dosage: UNK, QD
     Route: 048
     Dates: start: 201304
  33. POLLEN D^ABEILLE [Concomitant]
     Indication: SUPPLEMENTATION THERAPY
     Dosage: UNK, BID
     Route: 048
     Dates: start: 201304
  34. VITAMINS                           /90003601/ [Concomitant]
     Active Substance: VITAMINS
     Indication: SUPPLEMENTATION THERAPY
     Dosage: UNK
     Route: 065
     Dates: start: 201305
  35. CHARDON MARIE [Concomitant]
     Indication: SUPPLEMENTATION THERAPY
     Dosage: 10 MG, TID
     Route: 048
     Dates: end: 201204
  36. CALCIUM [Concomitant]
     Active Substance: CALCIUM
     Indication: SUPPLEMENTATION THERAPY
     Dosage: 600 MG, TID
     Route: 048
     Dates: start: 201001
  37. POLYSPORIN                         /00452901/ [Concomitant]
     Indication: PROPHYLAXIS
     Dosage: 1 COAT, PRN
     Route: 061
     Dates: start: 201207
  38. FLAGYL [Concomitant]
     Active Substance: METRONIDAZOLE\METRONIDAZOLE HYDROCHLORIDE
     Indication: DIVERTICULITIS
     Dosage: 500 MG, TID
     Route: 048
     Dates: start: 20130411, end: 20130426
  39. FLORALAX [Concomitant]
     Indication: LAXATIVE SUPPORTIVE CARE
     Dosage: UNK
     Route: 048
  40. TYLENOL EXTRA STRENGTH [Concomitant]
     Active Substance: ACETAMINOPHEN
     Indication: MIGRAINE
     Dosage: UNK,  PRN, 2 TABS
     Route: 048
     Dates: start: 20131129
  41. COENZYME Q10 [Concomitant]
     Active Substance: UBIDECARENONE
     Indication: SUPPLEMENTATION THERAPY
     Dosage: 100 MG, TID
     Route: 048
     Dates: start: 20111101, end: 20120401
  42. ECCHYNACEE [Concomitant]
     Indication: SUPPLEMENTATION THERAPY
     Dosage: 10 ML, BID, QOW
     Route: 048
     Dates: start: 20120110, end: 20120401
  43. ACET                               /00020001/ [Concomitant]
     Indication: PAIN
     Dosage: 650 MG, PRN
     Route: 054

REACTIONS (53)
  - Haemolysis [Unknown]
  - Haemolysis [Recovered/Resolved]
  - Yellow skin [Recovered/Resolved]
  - Constipation [Recovered/Resolved]
  - Myalgia [Not Recovered/Not Resolved]
  - Fall [Unknown]
  - Migraine [Recovered/Resolved]
  - Pain [Recovered/Resolved]
  - Myalgia [Recovered/Resolved]
  - Chest pain [Recovered/Resolved]
  - Nasopharyngitis [Recovered/Resolved]
  - Haemolysis [Recovered/Resolved]
  - Migraine [Recovered/Resolved]
  - Migraine [Recovered/Resolved]
  - Chromaturia [Recovered/Resolved]
  - Arthralgia [Recovered/Resolved]
  - Headache [Recovered/Resolved]
  - Nausea [Recovered/Resolved]
  - Nausea [Not Recovered/Not Resolved]
  - Nausea [Recovered/Resolved]
  - Head injury [Recovered/Resolved]
  - Pyrexia [Recovered/Resolved]
  - Dysphagia [Recovered/Resolved]
  - Migraine [Recovered/Resolved]
  - Pain [Recovered/Resolved]
  - Abdominal pain [Recovered/Resolved]
  - Vomiting [Recovered/Resolved]
  - Nausea [Recovered/Resolved]
  - Arthralgia [Not Recovered/Not Resolved]
  - Confusional state [Recovered/Resolved]
  - Yellow skin [Recovered/Resolved]
  - Migraine [Recovered/Resolved]
  - Gait disturbance [Recovered/Resolved]
  - Haemolytic anaemia [Recovered/Resolved]
  - Haemolysis [Recovered/Resolved]
  - Yellow skin [Recovered/Resolved]
  - Chromaturia [Recovered/Resolved]
  - Headache [Recovered/Resolved]
  - Scratch [Recovered/Resolved]
  - Chromaturia [Recovered/Resolved]
  - Ligament rupture [Not Recovered/Not Resolved]
  - Migraine [Recovered/Resolved]
  - Migraine [Recovered/Resolved]
  - Nausea [Recovered/Resolved]
  - Nausea [Recovered/Resolved]
  - Myalgia [Recovered/Resolved]
  - Jaundice [Recovered/Resolved]
  - Migraine [Recovered/Resolved]
  - Dermatitis allergic [Recovered/Resolved]
  - Pain [Recovered/Resolved]
  - Chromaturia [Recovered/Resolved]
  - Fatigue [Recovered/Resolved]
  - Nausea [Recovered/Resolved]

NARRATIVE: CASE EVENT DATE: 2014
